FAERS Safety Report 8762943 (Version 1)
Quarter: 2012Q4

REPORT INFORMATION
  Report Type: Spontaneous
  Country: US (occurrence: None)
  Receive Date: 20120830
  Receipt Date: 20120830
  Transmission Date: 20130627
  Serious: No
  Sender: FDA-Public Use
  Company Number: None

PATIENT
  Age: 55 Year
  Sex: Male
  Weight: 95.26 kg

DRUGS (1)
  1. CIPRO [Suspect]
     Indication: INFECTED TOE
     Route: 048
     Dates: start: 20101103, end: 20101106

REACTIONS (5)
  - Pharyngeal oedema [None]
  - Swelling [None]
  - Rotator cuff syndrome [None]
  - Cataract [None]
  - Economic problem [None]
